FAERS Safety Report 8150724-8 (Version None)
Quarter: 2012Q1

REPORT INFORMATION
  Report Type: 
  Country: None (occurrence: None)
  Receive Date: 20120220
  Receipt Date: 20120217
  Transmission Date: 20120608
  Serious: Yes (Other)
  Sender: FDA-Public Use
  Company Number: US-BAYER-2012-016301

PATIENT

DRUGS (1)
  1. NEXAVAR [Suspect]
     Indication: PANCREATIC CARCINOMA

REACTIONS (4)
  - GLAUCOMA [None]
  - ANAPHYLACTIC REACTION [None]
  - HEADACHE [None]
  - SKIN DISORDER [None]
